FAERS Safety Report 18457594 (Version 1)
Quarter: 2020Q4

REPORT INFORMATION
  Report Type: Spontaneous
  Country: US (occurrence: US)
  Receive Date: 20201103
  Receipt Date: 20201103
  Transmission Date: 20210114
  Serious: No
  Sender: FDA-Public Use
  Company Number: US-BIOGEN-2020BI00941645

PATIENT
  Sex: Female

DRUGS (1)
  1. TYSABRI [Suspect]
     Active Substance: NATALIZUMAB
     Indication: MULTIPLE SCLEROSIS
     Route: 065
     Dates: start: 20160324, end: 20191120

REACTIONS (6)
  - Trigeminal neuralgia [Unknown]
  - Vertigo [Unknown]
  - Occipital neuralgia [Unknown]
  - Hypoaesthesia oral [Unknown]
  - Feeling drunk [Unknown]
  - Hypoaesthesia [Unknown]
